FAERS Safety Report 5448978-1 (Version None)
Quarter: 2007Q3

REPORT INFORMATION
  Report Type: 
  Country: None (occurrence: None)
  Receive Date: 20070911
  Receipt Date: 20070831
  Transmission Date: 20080115
  Serious: Yes (Other)
  Sender: FDA-Public Use
  Company Number: GB-ROCHE-510015

PATIENT
  Age: 56 Year
  Sex: Female

DRUGS (3)
  1. BONIVA [Suspect]
     Indication: OSTEOPOROSIS
     Route: 048
     Dates: start: 20070112, end: 20070828
  2. AMITRIPTYLINE HCL [Concomitant]
     Indication: SLEEP DISORDER THERAPY
     Dosage: BEFORE 2002
     Route: 048
  3. PROCHLORPERAZINE [Concomitant]
     Indication: LABYRINTHITIS
     Dosage: BEFORE 2002
     Route: 048

REACTIONS (1)
  - HALLUCINATION, VISUAL [None]
